FAERS Safety Report 9403295 (Version 2)
Quarter: 2013Q3

REPORT INFORMATION
  Report Type: Report from Study
  Country: US (occurrence: US)
  Receive Date: 20130716
  Receipt Date: 20130731
  Transmission Date: 20140515
  Serious: Yes (Hospitalization)
  Sender: FDA-Public Use
  Company Number: US-PFIZER INC-2013198252

PATIENT
  Age: 66 Year
  Sex: Male
  Weight: 81.4 kg

DRUGS (10)
  1. TEMSIROLIMUS [Suspect]
     Indication: PROSTATE CANCER METASTATIC
     Dosage: 25 MG, WEEKLY
     Route: 042
     Dates: start: 20130422, end: 20130612
  2. VORINOSTAT [Suspect]
     Indication: PROSTATE CANCER METASTATIC
     Dosage: 200 MG, 1X/DAY X 14 DAYS
     Route: 048
     Dates: start: 20130422, end: 20130616
  3. DILAUDID [Concomitant]
     Dosage: 4 MG, EVERY 4 HRS AS NEEDED
  4. HALDOL [Concomitant]
     Dosage: AS NEEDED
  5. LOVENOX [Concomitant]
     Dosage: 120 MG, 1X/DAY
  6. METHADONE [Concomitant]
     Dosage: 10 MG, 3X/DAY (EVERY 8 HOURS)
  7. METOPROLOL [Concomitant]
     Dosage: 50 MG, 2X/DAY
  8. RITALIN [Concomitant]
     Dosage: 10 DF (TABLET), 1X/DAY
  9. DOCUSATE SODIUM\SENNOSIDES [Concomitant]
     Dosage: 2 DF (TABLETS), 2X/DAY
  10. ZOFRAN [Concomitant]
     Dosage: 3X/DAY (EVERY 8 HOURS) AS NEEDED

REACTIONS (1)
  - Dehydration [Recovered/Resolved]
